FAERS Safety Report 13523309 (Version 2)
Quarter: 2017Q2

REPORT INFORMATION
  Report Type: Spontaneous
  Country: US (occurrence: US)
  Receive Date: 20170508
  Receipt Date: 20170522
  Transmission Date: 20170830
  Serious: Yes (Life-Threatening, Hospitalization, Other)
  Sender: FDA-Public Use
  Company Number: US-BAYER-2017-083153

PATIENT
  Age: 67 Year
  Sex: Female
  Weight: 63.5 kg

DRUGS (9)
  1. BAYER LOW DOSE [Suspect]
     Active Substance: ASPIRIN
     Indication: PROPHYLAXIS
     Dosage: 81 MG, QD
     Route: 048
     Dates: start: 2011
  2. JANTOVEN [Interacting]
     Active Substance: WARFARIN SODIUM
     Indication: PROPHYLAXIS
     Dosage: 1 MG, QD
     Route: 048
     Dates: start: 201508, end: 20170406
  3. LYRICA [Concomitant]
     Active Substance: PREGABALIN
     Indication: FIBROMYALGIA
     Dosage: UNK
  4. AMBIEN [Concomitant]
     Active Substance: ZOLPIDEM TARTRATE
     Indication: INSOMNIA
     Dosage: UNK
  5. JANTOVEN [Interacting]
     Active Substance: WARFARIN SODIUM
     Indication: PROPHYLAXIS
     Dosage: 10 MG, QD
     Route: 048
     Dates: start: 201703
  6. CHLORZOXAZONE. [Concomitant]
     Active Substance: CHLORZOXAZONE
     Indication: PAIN
     Dosage: UNK
  7. LUBIPROSTONE [Concomitant]
     Active Substance: LUBIPROSTONE
     Indication: CONSTIPATION
     Dosage: UNK
  8. OMEPRAZOLE. [Concomitant]
     Active Substance: OMEPRAZOLE
     Indication: GASTROOESOPHAGEAL REFLUX DISEASE
     Dosage: UNK
  9. PROCHLORPERAZINE. [Concomitant]
     Active Substance: PROCHLORPERAZINE
     Indication: NAUSEA
     Dosage: UNK

REACTIONS (7)
  - Toxicity to various agents [Recovered/Resolved with Sequelae]
  - Haemorrhagic anaemia [Recovering/Resolving]
  - Hypotension [None]
  - Haemorrhage subcutaneous [Unknown]
  - Labelled drug-drug interaction medication error [None]
  - Drug administration error [None]
  - Spontaneous haemorrhage [Unknown]

NARRATIVE: CASE EVENT DATE: 201704
